FAERS Safety Report 25163168 (Version 1)
Quarter: 2025Q2

REPORT INFORMATION
  Report Type: Spontaneous
  Country: NL (occurrence: NL)
  Receive Date: 20250404
  Receipt Date: 20250404
  Transmission Date: 20250717
  Serious: Yes (Death, Hospitalization, Other)
  Sender: PURDUE
  Company Number: NL-PURDUE PHARMA-USA-2025-0316531

PATIENT
  Age: 23 Year
  Sex: Male

DRUGS (5)
  1. OXYCODONE HYDROCHLORIDE [Suspect]
     Active Substance: OXYCODONE HYDROCHLORIDE
     Indication: Product used for unknown indication
     Route: 065
  2. COCAINE [Suspect]
     Active Substance: COCAINE
     Indication: Product used for unknown indication
     Route: 065
  3. ALCOHOL [Suspect]
     Active Substance: ALCOHOL
     Indication: Product used for unknown indication
     Route: 065
  4. QUETIAPINE [Suspect]
     Active Substance: QUETIAPINE
     Indication: Product used for unknown indication
     Route: 065
  5. GRAPEFRUIT [Suspect]
     Active Substance: GRAPEFRUIT
     Indication: Product used for unknown indication
     Route: 065

REACTIONS (18)
  - Toxic leukoencephalopathy [Fatal]
  - Multiple organ dysfunction syndrome [Fatal]
  - Hepatic failure [Fatal]
  - Renal failure [Fatal]
  - Overdose [Fatal]
  - Substance abuse [Fatal]
  - Cyanosis [Unknown]
  - Rhabdomyolysis [Unknown]
  - Acute kidney injury [Unknown]
  - Shock [Unknown]
  - Coma [Unknown]
  - Depressed level of consciousness [Unknown]
  - Unresponsive to stimuli [Unknown]
  - Respiration abnormal [Unknown]
  - Cerebellar infarction [Unknown]
  - Brain herniation [Unknown]
  - Hypoxia [Unknown]
  - Miosis [Unknown]
